FAERS Safety Report 10007326 (Version 1)
Quarter: 2014Q1

REPORT INFORMATION
  Report Type: Spontaneous
  Country: None (occurrence: None)
  Receive Date: 20140312
  Receipt Date: 20140312
  Transmission Date: 20141002
  Serious: No
  Sender: FDA-Public Use
  Company Number: None

PATIENT
  Age: 79 Year
  Sex: Female

DRUGS (1)
  1. TOBI [Suspect]
     Dosage: INHALE 300 MG(1 AMPULE) VIA NEBULIZER TWICE DAILY AS DIRECTED
     Route: 055

REACTIONS (1)
  - Hearing impaired [None]
